FAERS Safety Report 7651431-8 (Version None)
Quarter: 2011Q3

REPORT INFORMATION
  Report Type: 
  Country: None (occurrence: None)
  Receive Date: 20110802
  Receipt Date: 20110722
  Transmission Date: 20111222
  Serious: Yes (Other)
  Sender: FDA-Public Use
  Company Number: PHHY2011RU67570

PATIENT
  Age: 71 Year
  Sex: Female

DRUGS (6)
  1. MIACALCIN [Suspect]
     Indication: OSTEOPOROSIS
  2. ASPIRIN [Concomitant]
  3. CATALIN [Concomitant]
     Dosage: UNK
     Dates: start: 20110501
  4. MIACALCIN [Suspect]
     Indication: ANKLE FRACTURE
     Dosage: UNK
     Route: 045
  5. ENAP-HL [Concomitant]
  6. VITAMIN D [Concomitant]

REACTIONS (6)
  - VIRAL INFECTION [None]
  - CONJUNCTIVITIS [None]
  - VISUAL ACUITY REDUCED [None]
  - CHEST PAIN [None]
  - BLOOD PRESSURE INCREASED [None]
  - STRESS [None]
